FAERS Safety Report 24708037 (Version 2)
Quarter: 2024Q4

REPORT INFORMATION
  Report Type: Spontaneous
  Country: IT (occurrence: IT)
  Receive Date: 20241206
  Receipt Date: 20241226
  Transmission Date: 20250115
  Serious: Yes (Other)
  Sender: REGENERON
  Company Number: IT-REGENERON PHARMACEUTICALS, INC.-2024-168533

PATIENT
  Sex: Female

DRUGS (1)
  1. LIBTAYO [Suspect]
     Active Substance: CEMIPLIMAB-RWLC
     Indication: Squamous cell carcinoma of skin
     Dosage: 350 MG, Q3W
     Route: 065

REACTIONS (3)
  - Hypersensitivity [Recovering/Resolving]
  - Heat illness [Recovered/Resolved]
  - Chest pain [Recovered/Resolved]
